FAERS Safety Report 9936764 (Version 1)
Quarter: 2014Q1

REPORT INFORMATION
  Report Type: Spontaneous
  Country: US (occurrence: None)
  Receive Date: 20140107
  Receipt Date: 20140107
  Transmission Date: 20141002
  Serious: Yes (Other)
  Sender: FDA-Public Use
  Company Number: 2012AP000983

PATIENT
  Age: 75 Year
  Sex: Female

DRUGS (1)
  1. USA LEVOFLOXACIN FCT [Suspect]
     Indication: INFECTION

REACTIONS (1)
  - Tubulointerstitial nephritis [None]
